FAERS Safety Report 15105912 (Version 4)
Quarter: 2024Q3

REPORT INFORMATION
  Report Type: Report from Study
  Country: US (occurrence: US)
  Receive Date: 20180704
  Receipt Date: 20240909
  Transmission Date: 20241017
  Serious: Yes (Hospitalization)
  Sender: TAKEDA
  Company Number: US-SHIRE-US201823596

PATIENT
  Sex: Male

DRUGS (2)
  1. IDURSULFASE [Suspect]
     Active Substance: IDURSULFASE
     Indication: Product used for unknown indication
     Dosage: UNK
     Route: 065
     Dates: start: 20060208
  2. IDURSULFASE [Suspect]
     Active Substance: IDURSULFASE
     Dosage: UNK
     Route: 042
     Dates: start: 20061019

REACTIONS (8)
  - Weight decreased [Unknown]
  - Insurance issue [Unknown]
  - Illness [Unknown]
  - Multiple allergies [Unknown]
  - Product distribution issue [Not Recovered/Not Resolved]
  - Product use issue [Unknown]
  - Ear infection [Unknown]
  - Product dose omission issue [Not Recovered/Not Resolved]
